FAERS Safety Report 9670482 (Version 1)
Quarter: 2013Q4

REPORT INFORMATION
  Report Type: Report from Study
  Country: FR (occurrence: FR)
  Receive Date: 20131106
  Receipt Date: 20131106
  Transmission Date: 20140711
  Serious: Yes (Hospitalization)
  Sender: FDA-Public Use
  Company Number: FR-ROCHE-1299583

PATIENT
  Age: 39 Year
  Sex: Female

DRUGS (2)
  1. XOLAIR [Suspect]
     Indication: ASTHMA
     Route: 065
  2. FORADIL [Suspect]
     Indication: ASTHMA
     Route: 065

REACTIONS (1)
  - Asthma [Unknown]
